FAERS Safety Report 9870892 (Version 1)
Quarter: 2014Q1

REPORT INFORMATION
  Report Type: Spontaneous
  Country: US (occurrence: None)
  Receive Date: 20140204
  Receipt Date: 20140204
  Transmission Date: 20141002
  Serious: Yes (Other)
  Sender: FDA-Public Use
  Company Number: None

PATIENT
  Sex: 0

DRUGS (1)
  1. BOSAC-EVAC (BISCODYL USP LAXATIVE) SUPPOSITORIES [Suspect]
     Dates: start: 201310, end: 201310

REACTIONS (3)
  - Instillation site pain [None]
  - Instillation site irritation [None]
  - Product physical issue [None]
